FAERS Safety Report 23261827 (Version 7)
Quarter: 2024Q1

REPORT INFORMATION
  Report Type: Spontaneous
  Country: IL (occurrence: IL)
  Receive Date: 20231205
  Receipt Date: 20240226
  Transmission Date: 20240410
  Serious: Yes (Hospitalization, Other)
  Sender: FDA-Public Use
  Company Number: IL-002147023-NVSC2023IL255315

PATIENT
  Age: 60 Year
  Sex: Female

DRUGS (10)
  1. PIQRAY [Suspect]
     Active Substance: ALPELISIB
     Indication: Breast cancer metastatic
     Dosage: 300 MG A DAY ALTERNATING WITH 150 MG, QD
     Route: 048
     Dates: start: 20231119, end: 20231125
  2. METFORMIN [Concomitant]
     Active Substance: METFORMIN HYDROCHLORIDE
     Indication: Diabetes prophylaxis
     Dosage: 850 MG, QD
     Route: 065
  3. FEXOFENADINE [Concomitant]
     Active Substance: FEXOFENADINE HYDROCHLORIDE
     Indication: Prophylaxis
     Dosage: 180 MG, BID
     Route: 065
  4. ZYLLERGY [Concomitant]
     Indication: Product used for unknown indication
     Route: 065
  5. GAVISCON [Concomitant]
     Active Substance: ALUMINUM HYDROXIDE\MAGNESIUM CARBONATE
     Indication: Prophylaxis
     Dosage: UNK (STRENGTH (250 UNITS NOT REPORTED)
     Route: 065
  6. FLAXSEED [Concomitant]
     Active Substance: FLAX SEED
     Indication: Product used for unknown indication
     Dosage: 1250 MG
     Route: 065
  7. METAMIZOLE [Concomitant]
     Active Substance: METAMIZOLE
     Indication: Analgesic therapy
     Route: 065
  8. ACETAMINOPHEN [Concomitant]
     Active Substance: ACETAMINOPHEN
     Indication: Analgesic therapy
     Route: 065
  9. ADVIL [Concomitant]
     Active Substance: IBUPROFEN
     Indication: Analgesic therapy
     Route: 065
  10. CYANOCOBALAMIN\PYRIDOXINE HYDROCHLORIDE\THIAMINE [Concomitant]
     Active Substance: CYANOCOBALAMIN\PYRIDOXINE HYDROCHLORIDE\THIAMINE
     Indication: Product used for unknown indication
     Dosage: 1 DOSAGE FORM
     Route: 065

REACTIONS (27)
  - Drug hypersensitivity [Recovered/Resolved]
  - General physical health deterioration [Recovered/Resolved]
  - Oedema [Recovered/Resolved]
  - Papule [Recovered/Resolved]
  - Erythema [Recovered/Resolved]
  - Paraesthesia [Recovered/Resolved]
  - Rash [Recovered/Resolved]
  - Dyspnoea [Recovered/Resolved]
  - Pyrexia [Recovered/Resolved]
  - Nausea [Recovered/Resolved]
  - Vomiting [Recovered/Resolved]
  - Pruritus [Recovered/Resolved]
  - Swelling [Recovered/Resolved]
  - Hypokalaemia [Recovered/Resolved]
  - Thrombocytopenia [Recovered/Resolved]
  - Neuropathy peripheral [Recovered/Resolved]
  - Rash erythematous [Recovered/Resolved]
  - Chills [Recovered/Resolved]
  - Headache [Recovered/Resolved]
  - Ear discomfort [Recovered/Resolved]
  - Dysuria [Recovered/Resolved]
  - Respiratory disorder [Recovered/Resolved]
  - Dysphagia [Recovered/Resolved]
  - Dry mouth [Recovered/Resolved]
  - Dry skin [Not Recovered/Not Resolved]
  - Wrong technique in product usage process [Recovered/Resolved]
  - Off label use [Recovered/Resolved]

NARRATIVE: CASE EVENT DATE: 20231119
